FAERS Safety Report 25784813 (Version 1)
Quarter: 2025Q3

REPORT INFORMATION
  Report Type: Other
  Country: EU (occurrence: EU)
  Receive Date: 20250910
  Receipt Date: 20250910
  Transmission Date: 20251021
  Serious: Yes (Hospitalization)
  Sender: ZYDUS PHARM
  Company Number: None

PATIENT

DRUGS (5)
  1. OLANZAPINE [Interacting]
     Active Substance: OLANZAPINE
     Indication: Bipolar disorder
     Route: 048
  2. HYDROCHLOROTHIAZIDE\IRBESARTAN [Interacting]
     Active Substance: HYDROCHLOROTHIAZIDE\IRBESARTAN
     Indication: Hypertension
     Route: 048
     Dates: start: 20250424, end: 20250625
  3. CYAMEMAZINE [Interacting]
     Active Substance: CYAMEMAZINE
     Indication: Bipolar disorder
     Route: 048
  4. ACETAMINOPHEN\OPIUM [Interacting]
     Active Substance: ACETAMINOPHEN\OPIUM
     Indication: Pain
     Route: 048
     Dates: start: 20250616, end: 20250617
  5. ACETAMINOPHEN\OPIUM [Interacting]
     Active Substance: ACETAMINOPHEN\OPIUM
     Route: 048
     Dates: start: 20250620, end: 20250623

REACTIONS (3)
  - Acute kidney injury [Recovering/Resolving]
  - Drug interaction [Recovered/Resolved]
  - Urinary retention [Recovered/Resolved]

NARRATIVE: CASE EVENT DATE: 20250616
